FAERS Safety Report 19268014 (Version 1)
Quarter: 2021Q2

REPORT INFORMATION
  Report Type: Report from Study
  Country: VN (occurrence: VN)
  Receive Date: 20210518
  Receipt Date: 20210518
  Transmission Date: 20210717
  Serious: Yes (Death)
  Sender: FDA-Public Use
  Company Number: NVSC2021VN046073

PATIENT
  Age: 28 Month
  Sex: Male
  Weight: 12.7 kg

DRUGS (2)
  1. ZOLGENSMA [Suspect]
     Active Substance: ONASEMNOGENE ABEPARVOVEC-XIOI
     Indication: SPINAL MUSCULAR ATROPHY
     Dosage: 69.1 ML, ONCE/SINGLE
     Route: 042
     Dates: start: 20201120, end: 20201120
  2. PREDNISON [Concomitant]
     Active Substance: PREDNISONE
     Indication: HEPATIC ENZYME INCREASED
     Dosage: 0.25 MG/KG, QD
     Route: 065
     Dates: start: 20201119

REACTIONS (3)
  - Dyspnoea [Fatal]
  - Cyanosis [Fatal]
  - Sudden death [Fatal]

NARRATIVE: CASE EVENT DATE: 20210224
